FAERS Safety Report 8916671 (Version 1)
Quarter: 2012Q4

REPORT INFORMATION
  Report Type: 
  Country: US (occurrence: US)
  Receive Date: 20121120
  Receipt Date: 20121120
  Transmission Date: 20130627
  Serious: Yes (Other)
  Sender: FDA-Public Use
  Company Number: US-009507513-1211USA007262

PATIENT
  Sex: Female

DRUGS (6)
  1. FELBATOL [Suspect]
     Indication: EPILEPSY
     Dosage: 600 mg, qam
     Route: 048
     Dates: start: 20080213, end: 2010
  2. FELBATOL [Suspect]
     Dosage: 1200 mg, tid
     Route: 048
     Dates: start: 2010
  3. KEPPRA [Concomitant]
     Indication: EPILEPSY
     Dosage: 500 mg, bid
     Dates: start: 2000
  4. PRIMIDONE [Concomitant]
     Indication: EPILEPSY
     Dosage: 250 mg, per 3 days at bedtime
     Route: 048
     Dates: start: 1970
  5. CLINDAMYCIN [Concomitant]
     Indication: ROSACEA
     Dosage: 2 DF, qd
     Route: 061
  6. VITAMINS (UNSPECIFIED) [Concomitant]
     Indication: SUPPLEMENTATION THERAPY
     Dosage: 1 DF, qd
     Route: 048

REACTIONS (19)
  - Loss of consciousness [Recovered/Resolved]
  - Uterine leiomyoma [Recovered/Resolved]
  - Benign neoplasm [Recovered/Resolved]
  - Diplopia [Recovered/Resolved]
  - Eczema [Not Recovered/Not Resolved]
  - Dry eye [Not Recovered/Not Resolved]
  - Lactose intolerance [Not Recovered/Not Resolved]
  - Impaired gastric emptying [Unknown]
  - Aphonia [Unknown]
  - Bone density abnormal [Not Recovered/Not Resolved]
  - Palpitations [Not Recovered/Not Resolved]
  - Dyspepsia [Not Recovered/Not Resolved]
  - Depression [Not Recovered/Not Resolved]
  - Weight decreased [Not Recovered/Not Resolved]
  - Jaundice [Not Recovered/Not Resolved]
  - Urinary incontinence [Not Recovered/Not Resolved]
  - Dyspnoea [Not Recovered/Not Resolved]
  - Contusion [Unknown]
  - Decreased appetite [Unknown]
